FAERS Safety Report 9608931 (Version 19)
Quarter: 2015Q3

REPORT INFORMATION
  Report Type: Report from Study
  Country: GB (occurrence: GB)
  Receive Date: 20131009
  Receipt Date: 20150917
  Transmission Date: 20151125
  Serious: Yes (Hospitalization, Other)
  Sender: FDA-Public Use
  Company Number: GB-TEVA-436676USA

PATIENT
  Age: 65 Year
  Sex: Male
  Weight: 73 kg

DRUGS (6)
  1. RITUXIMAB [Suspect]
     Active Substance: RITUXIMAB
     Dosage: 17.8571 MILLIGRAM DAILY;
     Route: 042
     Dates: start: 20130821
  2. BENDAMUSTINE [Suspect]
     Active Substance: BENDAMUSTINE
     Indication: CHRONIC LYMPHOCYTIC LEUKAEMIA
     Dosage: 2.5 MG/M2 DAILY; CYCLIC
     Route: 042
     Dates: start: 20130724
  3. BENDAMUSTINE [Suspect]
     Active Substance: BENDAMUSTINE
     Dosage: 1.7857 MG/M2 DAILY; CYCLIC
     Route: 042
     Dates: start: 20131009
  4. RITUXIMAB [Suspect]
     Active Substance: RITUXIMAB
     Indication: CHRONIC LYMPHOCYTIC LEUKAEMIA
     Dosage: 25.7143 MILLIGRAM DAILY;
     Route: 042
     Dates: start: 20130723
  5. IBRUTINIB [Suspect]
     Active Substance: IBRUTINIB
     Indication: CHRONIC LYMPHOCYTIC LEUKAEMIA
     Dosage: 420 MILLIGRAM DAILY;
     Route: 048
     Dates: start: 20131008
  6. IBRUTINIB [Suspect]
     Active Substance: IBRUTINIB
     Dosage: 420 MILLIGRAM DAILY;
     Route: 048
     Dates: start: 20130723, end: 20130924

REACTIONS (4)
  - Gastrointestinal haemorrhage [Recovered/Resolved]
  - Sepsis [Recovered/Resolved]
  - Gastritis [Recovered/Resolved]
  - Haematemesis [Recovered/Resolved]

NARRATIVE: CASE EVENT DATE: 20130924
